FAERS Safety Report 4587489-2 (Version None)
Quarter: 2005Q1

REPORT INFORMATION
  Report Type: 
  Country: None (occurrence: None)
  Receive Date: 20050215
  Receipt Date: 20050203
  Transmission Date: 20050727
  Serious: Yes (Other)
  Sender: FDA-Public Use
  Company Number: 2005027164

PATIENT
  Sex: Female

DRUGS (1)
  1. BEXTRA [Suspect]
     Indication: ILL-DEFINED DISORDER

REACTIONS (7)
  - ARTHRITIS [None]
  - BACK PAIN [None]
  - CATARACT OPERATION [None]
  - FALL [None]
  - JOINT SWELLING [None]
  - MUSCLE TWITCHING [None]
  - OEDEMA PERIPHERAL [None]
